FAERS Safety Report 5520542-5 (Version None)
Quarter: 2007Q4

REPORT INFORMATION
  Report Type: 
  Country: None (occurrence: None)
  Receive Date: 20071119
  Receipt Date: 20071107
  Transmission Date: 20080405
  Serious: Yes (Hospitalization, Other)
  Sender: FDA-Public Use
  Company Number: US-PFIZER INC-2007062149

PATIENT
  Sex: Female
  Weight: 108.9 kg

DRUGS (31)
  1. CHANTIX [Suspect]
     Indication: SMOKING CESSATION THERAPY
     Route: 048
  2. OXYGEN [Concomitant]
  3. TEMAZEPAM [Concomitant]
  4. ALBUTEROL [Concomitant]
  5. OXYCONTIN [Concomitant]
  6. LEVAQUIN [Concomitant]
  7. BENICAR [Concomitant]
  8. PROTONIX [Concomitant]
  9. FOSAMAX [Concomitant]
  10. LEXAPRO [Concomitant]
  11. CARDIZEM [Concomitant]
  12. BENTYL [Concomitant]
  13. SEROQUEL [Concomitant]
  14. CARTIA XT [Concomitant]
  15. DEPAKOTE [Concomitant]
  16. VALTREX [Concomitant]
  17. COMPAZINE [Concomitant]
  18. ALPRAZOLAM [Concomitant]
  19. MONTELUKAST SODIUM [Concomitant]
  20. HYOSCYAMINE [Concomitant]
  21. COMBIVENT [Concomitant]
  22. DUONEB [Concomitant]
  23. FLOVENT [Concomitant]
  24. SEREVENT [Concomitant]
  25. ALL OTHER THERAPEUTIC PRODUCTS [Concomitant]
  26. DIGOXIN [Concomitant]
  27. FUROSEMIDE [Concomitant]
  28. DOXAZOSIN MESYLATE [Concomitant]
  29. HYDROXYZINE PAMOATE [Concomitant]
  30. CALCIUM [Concomitant]
  31. ZAROXOLYN [Concomitant]

REACTIONS (11)
  - CHEST PAIN [None]
  - CHRONIC OBSTRUCTIVE PULMONARY DISEASE [None]
  - DEPRESSION [None]
  - HYPOXIA [None]
  - INSOMNIA [None]
  - MALAISE [None]
  - NAUSEA [None]
  - PNEUMONIA [None]
  - STRESS [None]
  - UNDERDOSE [None]
  - WEIGHT INCREASED [None]
